FAERS Safety Report 4536999-2 (Version None)
Quarter: 2004Q4

REPORT INFORMATION
  Report Type: 
  Country: None (occurrence: None)
  Receive Date: 20041223
  Receipt Date: 20041216
  Transmission Date: 20050328
  Serious: Yes (Hospitalization)
  Sender: FDA-Public Use
  Company Number: FR-BRISTOL-MYERS SQUIBB COMPANY-12799698

PATIENT
  Age: 64 Year
  Sex: Female

DRUGS (11)
  1. GLUCOPHAGE [Suspect]
     Indication: DIABETES MELLITUS NON-INSULIN-DEPENDENT
     Route: 048
     Dates: end: 20040223
  2. LIPANTHYL [Suspect]
     Route: 048
     Dates: end: 20040223
  3. MOTILIUM [Suspect]
     Route: 048
  4. NITRODERM [Suspect]
  5. BUSPAR [Suspect]
     Route: 048
  6. CELECTOL [Suspect]
     Route: 048
  7. ZIRTEC [Concomitant]
     Route: 048
  8. SERMION [Concomitant]
     Route: 048
  9. EUPHYTOSE [Concomitant]
  10. VASTAREL [Concomitant]
     Route: 048
  11. NITROGLYCERIN [Concomitant]

REACTIONS (1)
  - BLOOD CREATININE INCREASED [None]
